FAERS Safety Report 6731580-9 (Version None)
Quarter: 2010Q2

REPORT INFORMATION
  Report Type: 
  Country: None (occurrence: None)
  Receive Date: 20100519
  Receipt Date: 20100506
  Transmission Date: 20101027
  Serious: Yes (Other)
  Sender: FDA-Public Use
  Company Number: US-RB-009479-10

PATIENT
  Age: 48 Year
  Sex: Female

DRUGS (1)
  1. MUCINEX [Suspect]
     Dosage: TOOK ONE TABLET A DAY FOR A WEEK OR TWO
     Route: 048
     Dates: start: 20100401

REACTIONS (2)
  - BLOOD PRESSURE INCREASED [None]
  - PALPITATIONS [None]
